FAERS Safety Report 23990227 (Version 1)
Quarter: 2024Q2

REPORT INFORMATION
  Report Type: Report from Study
  Country: PL (occurrence: PL)
  Receive Date: 20240619
  Receipt Date: 20240619
  Transmission Date: 20240716
  Serious: Yes (Death, Hospitalization, Other)
  Sender: FDA-Public Use
  Company Number: PL-TAKEDA-2021TUS006715

PATIENT
  Age: 50 Year
  Sex: Male
  Weight: 90 kg

DRUGS (11)
  1. ADCETRIS [Suspect]
     Active Substance: BRENTUXIMAB VEDOTIN
     Indication: Cutaneous T-cell lymphoma
     Dosage: 1.8 MILLIGRAM/KILOGRAM, Q3WEEKS
     Route: 042
     Dates: start: 20210129
  2. GEMCITABINE [Concomitant]
     Active Substance: GEMCITABINE
     Indication: Myelofibrosis
     Dosage: 2104 MILLIGRAM
     Route: 042
     Dates: start: 20201231, end: 20210115
  3. ALLOPURINOL [Concomitant]
     Active Substance: ALLOPURINOL
     Indication: Hypothyroidism
     Dosage: UNK
     Route: 048
     Dates: start: 2015
  4. LEVOTHYROXINE [Concomitant]
     Active Substance: LEVOTHYROXINE\LEVOTHYROXINE SODIUM
     Indication: Hypothyroidism
     Dosage: UNK
     Route: 048
     Dates: start: 2015
  5. ATORVASTATIN [Concomitant]
     Active Substance: ATORVASTATIN
     Indication: Hypercholesterolaemia
     Dosage: UNK
     Route: 048
     Dates: start: 2015
  6. FENOFIBRATE [Concomitant]
     Active Substance: FENOFIBRATE
     Indication: Hypertriglyceridaemia
     Dosage: UNK
     Route: 048
     Dates: start: 2015
  7. VANCOMYCINUM [Concomitant]
     Indication: Infection
     Dosage: 1 GRAM
     Route: 042
     Dates: start: 20210202, end: 20210209
  8. MEROPENEM [Concomitant]
     Active Substance: MEROPENEM
     Indication: Infection
     Dosage: 500 MILLIGRAM
     Route: 042
     Dates: start: 20210202, end: 20210209
  9. MORPHINE [Concomitant]
     Active Substance: MORPHINE
     Indication: Pain
     Dosage: 1 MILLIGRAM, Q1HR
     Route: 042
     Dates: start: 20210209, end: 20210210
  10. FILGRASTIM [Concomitant]
     Active Substance: FILGRASTIM
     Indication: Neutropenia
     Dosage: UNK
     Route: 042
     Dates: start: 20210206, end: 20210209
  11. RASBURICASE [Concomitant]
     Active Substance: RASBURICASE
     Indication: Hyperuricaemia
     Dosage: 1.5 MILLIGRAM
     Route: 042
     Dates: start: 20210201, end: 20210203

REACTIONS (9)
  - Acute kidney injury [Fatal]
  - C-reactive protein increased [Fatal]
  - Procalcitonin increased [Fatal]
  - Red blood cell sedimentation rate increased [Fatal]
  - General physical health deterioration [Fatal]
  - Neoplasm progression [Fatal]
  - Tumour lysis syndrome [Recovering/Resolving]
  - Hepatic failure [Recovering/Resolving]
  - Inflammatory marker increased [Not Recovered/Not Resolved]

NARRATIVE: CASE EVENT DATE: 20210129
